FAERS Safety Report 7404125-8 (Version None)
Quarter: 2011Q2

REPORT INFORMATION
  Report Type: 
  Country: None (occurrence: None)
  Receive Date: 20110408
  Receipt Date: 20110329
  Transmission Date: 20111010
  Serious: Yes (Hospitalization, Other)
  Sender: FDA-Public Use
  Company Number: US-ABBOTT-11P-163-0715417-01

PATIENT
  Sex: Male

DRUGS (67)
  1. ALIGN [Concomitant]
     Indication: PROPHYLAXIS AGAINST GASTROINTESTINAL ULCER
     Dates: start: 20081110, end: 20081124
  2. IRON PREPARATIONS [Concomitant]
     Indication: ANAEMIA
     Dates: start: 20100118, end: 20100301
  3. METHYLPREDNISOLONE [Concomitant]
     Indication: SMALL INTESTINAL OBSTRUCTION
     Dates: start: 20100411, end: 20100415
  4. HYOSCYAMINE SULFATE [Concomitant]
     Indication: ABDOMINAL PAIN
     Dosage: 1/2 - 1 TAB
     Dates: start: 20090210
  5. MORPHINE [Concomitant]
     Indication: SMALL INTESTINAL OBSTRUCTION
  6. IRON PREPARATIONS [Concomitant]
     Dates: start: 20100312
  7. PREDNISONE [Concomitant]
     Dates: start: 20100603, end: 20100609
  8. OMEPRAZOLE [Concomitant]
     Indication: ABDOMINAL PAIN
     Dates: start: 20100430
  9. LOVENOX [Concomitant]
     Indication: THROMBOSIS PROPHYLAXIS
     Dates: start: 20101104, end: 20101104
  10. LIDODERM [Concomitant]
     Indication: INTESTINAL RESECTION
     Dosage: 1 PATCH
     Dates: start: 20101105, end: 20101105
  11. POTASSIUM CHLORIDE [Concomitant]
     Dosage: X1
     Dates: start: 20101108, end: 20101108
  12. DEXTROSE W/POTASSIUM CHLORIDE AND NACL [Concomitant]
     Indication: INTESTINAL RESECTION
     Dosage: X1
     Dates: start: 20101106, end: 20101106
  13. ACETAMINOPHEN [Concomitant]
     Indication: NASOPHARYNGITIS
  14. ALBUTEROL [Concomitant]
     Indication: ASTHMA
     Dates: start: 19930101
  15. CIPRO [Concomitant]
     Dates: start: 20100410, end: 20100415
  16. CIPRO [Concomitant]
     Dates: start: 20100415, end: 20100424
  17. VITAMIN D [Concomitant]
     Indication: VITAMIN SUPPLEMENTATION
     Dates: start: 20081228
  18. MORPHINE [Concomitant]
     Indication: ABDOMINAL PAIN
     Dates: start: 20100410, end: 20100410
  19. FLAGYL [Concomitant]
     Indication: CROHN'S DISEASE
     Dates: start: 20100218, end: 20100303
  20. HYDROCORTISONE [Concomitant]
     Indication: DERMATITIS CONTACT
     Dates: start: 20100604, end: 20100612
  21. LOVENOX [Concomitant]
     Dates: start: 20101106, end: 20101107
  22. CYCLOPHOSPH+MESNA [Concomitant]
     Indication: INTESTINAL RESECTION
     Dates: start: 20101105, end: 20101105
  23. HUMIRA [Suspect]
     Indication: CROHN'S DISEASE
     Route: 058
     Dates: start: 20071227, end: 20100430
  24. IMURAN [Concomitant]
     Indication: CROHN'S DISEASE
     Dates: start: 20080501, end: 20081001
  25. VITAMIN B-12 [Concomitant]
     Indication: FATIGUE
     Dates: start: 20091102
  26. PREDNISONE [Concomitant]
     Dates: start: 20100520, end: 20100526
  27. FENTANYL [Concomitant]
     Indication: ABDOMINAL PAIN
     Dates: start: 20100410, end: 20100415
  28. FENTANYL [Concomitant]
     Indication: SMALL INTESTINAL OBSTRUCTION
     Dosage: X1
     Dates: start: 20101105, end: 20101105
  29. FENTANYL [Concomitant]
     Dosage: X1
     Dates: start: 20101107, end: 20101107
  30. CALCIUM GLUCONATE [Concomitant]
     Indication: HYPOCALCAEMIA
     Dates: start: 20100412, end: 20100412
  31. HYDROMORPHONE HCL [Concomitant]
     Dosage: X1
     Dates: start: 20101104, end: 20101104
  32. ESOMEPRAZOLE [Concomitant]
     Indication: PROPHYLAXIS AGAINST GASTROINTESTINAL ULCER
     Dates: start: 20101104, end: 20101107
  33. LASIX [Concomitant]
     Indication: INTESTINAL RESECTION
     Dates: start: 20101105, end: 20101105
  34. PANTOPRAZOLE [Concomitant]
     Indication: ABDOMINAL PAIN
     Dates: start: 20100901
  35. ACETAMINOPHEN [Concomitant]
     Indication: HEADACHE
     Dates: start: 19950101
  36. TAMIFLU [Concomitant]
     Indication: INFLUENZA
     Dates: start: 20080209, end: 20080214
  37. ANALPRAM HC [Concomitant]
     Indication: HAEMORRHOIDS
     Dates: start: 20081110
  38. PROCTOFOAM [Concomitant]
     Indication: HAEMORRHOIDS
     Dates: start: 20081110
  39. STUARTNATAL 1+1 [Concomitant]
     Indication: VITAMIN SUPPLEMENTATION
     Dates: start: 20081228
  40. ISOVUE-370 [Concomitant]
     Indication: SCAN WITH CONTRAST
     Dosage: X1
     Dates: start: 20100410, end: 20100410
  41. PREDNISONE [Concomitant]
     Dates: start: 20100506, end: 20100512
  42. PREDNISONE [Concomitant]
     Dates: start: 20100513, end: 20100519
  43. ESOMEPRAZOLE [Concomitant]
     Dates: start: 20101108, end: 20101108
  44. SODIUM CHLORIDE [Concomitant]
     Indication: INTESTINAL RESECTION
     Dates: start: 20101104, end: 20101104
  45. CIPRO [Concomitant]
     Dates: start: 20100218, end: 20100303
  46. CIPRO [Concomitant]
     Dates: start: 20101110
  47. PROTONIX [Concomitant]
     Indication: ABDOMINAL PAIN
     Dates: start: 20100101, end: 20100301
  48. ACIPHEX [Concomitant]
     Indication: ABDOMINAL PAIN
     Dates: start: 20100401, end: 20100430
  49. FLAGYL [Concomitant]
     Indication: SMALL INTESTINAL OBSTRUCTION
     Dates: start: 20100410, end: 20100415
  50. PREDNISONE [Concomitant]
     Dates: start: 20100429, end: 20100505
  51. HYDROMORPHONE HCL [Concomitant]
     Indication: ANAESTHESIA
     Dates: start: 20101103, end: 20101103
  52. BENADRYL [Concomitant]
     Indication: SEASONAL ALLERGY
     Dates: start: 19980101
  53. PREDNISONE [Concomitant]
     Indication: CROHN'S DISEASE
     Dates: start: 20100415, end: 20100421
  54. PREDNISONE [Concomitant]
     Dates: start: 20100422, end: 20100428
  55. PREDNISONE [Concomitant]
     Dates: start: 20100527, end: 20100602
  56. FENTANYL [Concomitant]
     Dates: start: 20101105, end: 20101107
  57. DIPHENHYDRAMINE HCL [Concomitant]
     Indication: PRURITUS
     Dates: start: 20101105, end: 20101105
  58. POTASSIUM CHLORIDE [Concomitant]
     Indication: INTESTINAL RESECTION
     Dates: start: 20101106, end: 20101106
  59. PERCOCET [Concomitant]
     Indication: INTESTINAL RESECTION
     Dosage: 325/5
     Dates: start: 20101107, end: 20101108
  60. DEXTROSE W/POTASSIUM CHLORIDE AND NACL [Concomitant]
     Dosage: X1
     Dates: start: 20101104, end: 20101104
  61. CIPRO [Concomitant]
     Indication: NASOPHARYNGITIS
     Dates: start: 20081110, end: 20081124
  62. FLAGYL [Concomitant]
     Dates: start: 20100415, end: 20100424
  63. FLAGYL [Concomitant]
     Dates: start: 20101110
  64. ASACOL [Concomitant]
     Indication: CROHN'S DISEASE
     Dates: start: 20010401, end: 20080501
  65. CIMZIA [Concomitant]
     Indication: CROHN'S DISEASE
     Dates: start: 20100505, end: 20100505
  66. CIMZIA [Concomitant]
     Dosage: X1
     Dates: start: 20100519, end: 20100519
  67. DIPHENHYDRAMINE HCL [Concomitant]
     Indication: PROPHYLAXIS

REACTIONS (2)
  - INTESTINAL STENOSIS [None]
  - CROHN'S DISEASE [None]
